FAERS Safety Report 22042706 (Version 1)
Quarter: 2023Q1

REPORT INFORMATION
  Report Type: Spontaneous
  Country: IN (occurrence: IN)
  Receive Date: 20230228
  Receipt Date: 20230228
  Transmission Date: 20230418
  Serious: Yes (Death, Hospitalization, Other)
  Sender: FDA-Public Use
  Company Number: IN-IPCA LABORATORIES LIMITED-IPC-2023-IN-000324

PATIENT

DRUGS (2)
  1. METFORMIN [Suspect]
     Active Substance: METFORMIN HYDROCHLORIDE
     Indication: Type 2 diabetes mellitus
     Dosage: 1000 MILLIGRAM, BID
     Route: 065
  2. LEVOTHYROXINE [Concomitant]
     Active Substance: LEVOTHYROXINE
     Indication: Hypothyroidism
     Dosage: 50 MICROGRAM, QD
     Route: 065

REACTIONS (5)
  - Lactic acidosis [Fatal]
  - Hypercapnia [Fatal]
  - Tachycardia [Fatal]
  - Coma [Fatal]
  - Hypotension [Fatal]
